FAERS Safety Report 8260662-8 (Version None)
Quarter: 2012Q2

REPORT INFORMATION
  Report Type: 
  Country: None (occurrence: None)
  Receive Date: 20120405
  Receipt Date: 20120323
  Transmission Date: 20120825
  Serious: Yes (Other)
  Sender: FDA-Public Use
  Company Number: SE-AMGEN-SWESP2012004196

PATIENT
  Age: 74 Year
  Sex: Male

DRUGS (4)
  1. ENBREL [Suspect]
     Indication: RHEUMATOID ARTHRITIS
     Dosage: 25 MG, 1X/DAY
     Route: 058
     Dates: start: 20070701
  2. PREDNISOLONE [Concomitant]
     Dosage: 5 MG, 1X/DAY
  3. METHOTREXATE [Concomitant]
     Dosage: 10 MG, WEEKLY
     Dates: start: 19970101
  4. OMEPRAZOLE [Concomitant]
     Dosage: UNK

REACTIONS (1)
  - MYELOPROLIFERATIVE DISORDER [None]
